FAERS Safety Report 4468162-8 (Version None)
Quarter: 2004Q4

REPORT INFORMATION
  Report Type: 
  Country: None (occurrence: None)
  Receive Date: 20041007
  Receipt Date: 20040915
  Transmission Date: 20050328
  Serious: Yes (Hospitalization)
  Sender: FDA-Public Use
  Company Number: FR-BRISTOL-MYERS SQUIBB COMPANY-12705612

PATIENT
  Age: 78 Year
  Sex: Male

DRUGS (7)
  1. HYDREA [Suspect]
     Indication: POLYCYTHAEMIA VERA
     Dosage: START DATE:  24-JUN-2004
     Route: 048
     Dates: start: 20040813, end: 20040813
  2. IMOVANE [Concomitant]
  3. PREVISCAN [Concomitant]
  4. SERECOR [Concomitant]
     Dosage: CAPSULES
     Route: 048
  5. VASTAREL [Concomitant]
  6. SIMVASTATIN [Concomitant]
  7. TOLEXINE [Concomitant]

REACTIONS (7)
  - CHILLS [None]
  - CHOLESTASIS [None]
  - CYTOLYTIC HEPATITIS [None]
  - HEPATITIS [None]
  - HEPATOMEGALY [None]
  - INFLAMMATION [None]
  - PYREXIA [None]
